FAERS Safety Report 8360448-X (Version None)
Quarter: 2012Q2

REPORT INFORMATION
  Report Type: 
  Country: None (occurrence: None)
  Receive Date: 20120515
  Receipt Date: 20120509
  Transmission Date: 20120825
  Serious: Yes (Death, Hospitalization, Other)
  Sender: FDA-Public Use
  Company Number: US-NOVOPROD-348390

PATIENT
  Age: 24 Year
  Sex: Female
  Weight: 117 kg

DRUGS (3)
  1. NOVOLOG [Suspect]
     Indication: GESTATIONAL DIABETES
     Dosage: UNKNOWN
     Route: 058
     Dates: start: 20120301
  2. LABETALOL HCL [Concomitant]
     Indication: HYPERTENSION
     Dosage: 400 MG, BID
     Route: 048
  3. ASPIRIN [Concomitant]
     Indication: HYPERTENSION
     Dosage: 1 TABLET, QD
     Route: 048

REACTIONS (5)
  - BLOOD GLUCOSE INCREASED [None]
  - STILLBIRTH [None]
  - HYPERTENSION [None]
  - MATERNAL EXPOSURE DURING PREGNANCY [None]
  - FOETAL HYPOKINESIA [None]
